FAERS Safety Report 12507612 (Version 9)
Quarter: 2017Q2

REPORT INFORMATION
  Report Type: Spontaneous
  Country: US (occurrence: US)
  Receive Date: 20160629
  Receipt Date: 20170412
  Transmission Date: 20170830
  Serious: Yes (Congenital Anomaly, Other)
  Sender: FDA-Public Use
  Company Number: PHHY2015US129897

PATIENT
  Sex: Female

DRUGS (2)
  1. ZOFRAN [Suspect]
     Active Substance: ONDANSETRON HYDROCHLORIDE
     Indication: FOETAL EXPOSURE DURING PREGNANCY
     Route: 064
  2. ONDANSETRON HYDROCHLORIDE. [Suspect]
     Active Substance: ONDANSETRON HYDROCHLORIDE
     Indication: FOETAL EXPOSURE DURING PREGNANCY
     Dosage: MOTHER DOSE: 4 MG AND 8 MG
     Route: 064

REACTIONS (11)
  - Foetal exposure during pregnancy [Unknown]
  - Speech disorder [Unknown]
  - Otitis media acute [Unknown]
  - Pain [Unknown]
  - Eating disorder [Unknown]
  - Anxiety [Unknown]
  - Congenital tongue anomaly [Unknown]
  - Feeding disorder [Unknown]
  - Congenital jaw malformation [Unknown]
  - Craniofacial deformity [Unknown]
  - Emotional distress [Unknown]
